FAERS Safety Report 20230716 (Version 1)
Quarter: 2021Q4

REPORT INFORMATION
  Report Type: Spontaneous
  Country: CZ (occurrence: CZ)
  Receive Date: 20211227
  Receipt Date: 20211227
  Transmission Date: 20220303
  Serious: Yes (Hospitalization, Other)
  Sender: FDA-Public Use
  Company Number: CZ-Merck Healthcare KGaA-9284728

PATIENT
  Age: 78 Year
  Sex: Male

DRUGS (6)
  1. BISOPROLOL [Suspect]
     Active Substance: BISOPROLOL
     Indication: Hypertension
     Dosage: UNK
     Route: 065
     Dates: end: 202104
  2. EPLERENONE [Suspect]
     Active Substance: EPLERENONE
     Indication: Hypertension
     Route: 065
     Dates: end: 202104
  3. ATORVASTATIN [Concomitant]
     Active Substance: ATORVASTATIN
     Indication: Product used for unknown indication
     Dosage: HIGH DOSE
     Route: 065
  4. ASPIRIN [Concomitant]
     Active Substance: ASPIRIN
     Indication: Product used for unknown indication
     Dosage: UNK
     Route: 065
  5. INSULIN GLARGINE [Concomitant]
     Active Substance: INSULIN GLARGINE
     Indication: Diabetes mellitus
     Dosage: UNK
     Route: 058
  6. INSULIN ASPART [Concomitant]
     Active Substance: INSULIN ASPART
     Indication: Diabetes mellitus
     Dosage: UNK
     Route: 058

REACTIONS (10)
  - Atrial fibrillation [Unknown]
  - Hypokalaemia [Recovered/Resolved]
  - Low density lipoprotein increased [Unknown]
  - Product dose omission issue [Unknown]
  - Dyspnoea exertional [Unknown]
  - Blood creatinine increased [Recovered/Resolved]
  - Troponin increased [Recovered/Resolved]
  - Accelerated hypertension [Unknown]
  - Glycosylated haemoglobin increased [Unknown]
  - Peripheral swelling [Unknown]

NARRATIVE: CASE EVENT DATE: 20210101
